FAERS Safety Report 5311106-7 (Version None)
Quarter: 2007Q2

REPORT INFORMATION
  Report Type: 
  Country: None (occurrence: None)
  Receive Date: 20070423
  Receipt Date: 20070406
  Transmission Date: 20071010
  Serious: Yes (Other)
  Sender: FDA-Public Use
  Company Number: A-JP2007-14969

PATIENT
  Age: 1 Year
  Sex: Male
  Weight: 6.7 kg

DRUGS (7)
  1. TRACLEER [Suspect]
     Indication: LUNG DISORDER
     Dosage: SEE IMAGE
     Route: 048
     Dates: start: 20050815, end: 20050912
  2. TRACLEER [Suspect]
     Indication: LUNG DISORDER
     Dosage: SEE IMAGE
     Route: 048
     Dates: start: 20050913, end: 20060210
  3. BERAPROST SODIUM(BERAPROST SODIUM) [Suspect]
  4. DIGOXIN [Concomitant]
  5. ASPIRIN [Concomitant]
  6. NITROGLYCERIN (GLYCERYL TRINITATE) [Concomitant]
  7. OXYGEN (OXYGEN) [Concomitant]

REACTIONS (3)
  - CARDIAC FAILURE [None]
  - POST PROCEDURAL COMPLICATION [None]
  - PULMONARY VASCULAR RESISTANCE ABNORMALITY [None]
